FAERS Safety Report 23854191 (Version 1)
Quarter: 2024Q2

REPORT INFORMATION
  Report Type: Spontaneous
  Country: AU (occurrence: AU)
  Receive Date: 20240514
  Receipt Date: 20240514
  Transmission Date: 20240716
  Serious: Yes (Life-Threatening)
  Sender: FDA-Public Use
  Company Number: AU-BRISTOL-MYERS SQUIBB COMPANY-2024-072767

PATIENT
  Age: 22 Year
  Sex: Female

DRUGS (1)
  1. APIXABAN [Suspect]
     Active Substance: APIXABAN
     Indication: Pulmonary embolism
     Dates: start: 2018

REACTIONS (5)
  - Dyspnoea [Unknown]
  - Urticaria [Recovered/Resolved]
  - Rash [Unknown]
  - Presyncope [Unknown]
  - Adverse event [Unknown]

NARRATIVE: CASE EVENT DATE: 20230501
